FAERS Safety Report 6902408-9 (Version None)
Quarter: 2010Q3

REPORT INFORMATION
  Report Type: 
  Country: None (occurrence: None)
  Receive Date: 20100803
  Receipt Date: 20080519
  Transmission Date: 20110219
  Serious: Yes (Other)
  Sender: FDA-Public Use
  Company Number: US-PFIZER INC-2008036399

PATIENT
  Age: 79 Year
  Sex: Female

DRUGS (10)
  1. LYRICA [Suspect]
     Indication: FIBROMYALGIA
     Dates: start: 20080414, end: 20080419
  2. LYRICA [Suspect]
     Indication: PELVIC PAIN
  3. LIPITOR [Concomitant]
  4. LEXAPRO [Concomitant]
  5. NEXIUM [Concomitant]
  6. PERCOCET [Concomitant]
  7. CYANOCOBALAMIN [Concomitant]
  8. DETROL LA [Concomitant]
  9. DEPO-ESTRADIOL [Concomitant]
  10. GABAPENTIN [Concomitant]

REACTIONS (7)
  - ANGIOEDEMA [None]
  - BLOOD PRESSURE INCREASED [None]
  - OEDEMA MOUTH [None]
  - OEDEMA PERIPHERAL [None]
  - PHARYNGEAL OEDEMA [None]
  - RASH [None]
  - SWELLING FACE [None]
